FAERS Safety Report 10580582 (Version 1)
Quarter: 2014Q4

REPORT INFORMATION
  Report Type: Spontaneous
  Country: CH (occurrence: CH)
  Receive Date: 20141113
  Receipt Date: 20141113
  Transmission Date: 20150529
  Serious: Yes (Hospitalization, Other)
  Sender: FDA-Public Use
  Company Number: CH-AMGEN-CHESP2014086661

PATIENT
  Age: 85 Year
  Sex: Male
  Weight: 89 kg

DRUGS (6)
  1. CELEBREX [Suspect]
     Active Substance: CELECOXIB
     Indication: METASTATIC PAIN
     Dosage: 200 MG, QD
     Route: 048
     Dates: start: 201407, end: 20140920
  2. XGEVA [Suspect]
     Active Substance: DENOSUMAB
     Indication: METASTASES TO BONE
     Dosage: 120 MG, UNK, 1 PER 1 TOTAL, VIALS
     Route: 058
     Dates: start: 20140905, end: 20140905
  3. VITAMIN D                          /00107901/ [Concomitant]
     Active Substance: ERGOCALCIFEROL
     Dosage: UNK
     Dates: start: 20140905
  4. PREDNISONE. [Suspect]
     Active Substance: PREDNISONE
     Indication: PROSTATE CANCER
     Dosage: 10 MG, QD
     Route: 048
     Dates: start: 20140903, end: 20140920
  5. ASPIRIN                            /00002701/ [Suspect]
     Active Substance: ASPIRIN
     Indication: CAROTID ARTERY INSUFFICIENCY
     Dosage: 100 MG, QD
     Route: 048
     Dates: end: 20140920
  6. TAXOTERE [Concomitant]
     Active Substance: DOCETAXEL
     Indication: PROSTATE CANCER
     Dosage: UNK, INFUSION AMPOULES, VIALS/BOTTLES
     Route: 042
     Dates: start: 20140905, end: 20140905

REACTIONS (9)
  - Haemorrhagic anaemia [Recovering/Resolving]
  - Transfusion [Unknown]
  - Duodenal ulcer [Recovered/Resolved]
  - Hypocalcaemia [Recovered/Resolved]
  - Melaena [Recovered/Resolved]
  - Medication monitoring error [Recovered/Resolved]
  - Electrocardiogram QT prolonged [Unknown]
  - Haemorrhage [Recovered/Resolved]
  - Upper gastrointestinal haemorrhage [Recovered/Resolved]

NARRATIVE: CASE EVENT DATE: 20140906
